FAERS Safety Report 25417682 (Version 1)
Quarter: 2025Q2

REPORT INFORMATION
  Report Type: Spontaneous
  Country: US (occurrence: None)
  Receive Date: 20250609
  Receipt Date: 20250609
  Transmission Date: 20250717
  Serious: No
  Sender: FDA-CTU
  Company Number: None

PATIENT
  Age: 40 Year
  Sex: Male
  Weight: 82.1 kg

DRUGS (2)
  1. GAMUNEX-C [Suspect]
     Active Substance: HUMAN IMMUNOGLOBULIN G
     Indication: Donor specific antibody present
     Route: 042
     Dates: start: 20240901, end: 20240901
  2. GAMUNEX-C [Suspect]
     Active Substance: HUMAN IMMUNOGLOBULIN G
     Indication: Donor specific antibody present
     Route: 042
     Dates: start: 20240901, end: 20240901

REACTIONS (2)
  - Infusion site urticaria [None]
  - Infusion related reaction [None]

NARRATIVE: CASE EVENT DATE: 20240901
